FAERS Safety Report 5121806-X (Version None)
Quarter: 2006Q4

REPORT INFORMATION
  Report Type: 
  Country: None (occurrence: None)
  Receive Date: 20061003
  Receipt Date: 20060920
  Transmission Date: 20070319
  Serious: Yes (Hospitalization)
  Sender: FDA-Public Use
  Company Number: MEDI-0004955

PATIENT
  Age: 3 Month

DRUGS (5)
  1. SYNAGIS [Suspect]
     Indication: ANTIVIRAL PROPHYLAXIS
     Dosage: INTRAMUSCULAR; SEE IMAGE
     Route: 030
     Dates: start: 20051014, end: 20051014
  2. SYNAGIS [Suspect]
     Indication: ANTIVIRAL PROPHYLAXIS
     Dosage: INTRAMUSCULAR; SEE IMAGE
     Route: 030
     Dates: start: 20051124
  3. SYNAGIS [Suspect]
     Indication: ANTIVIRAL PROPHYLAXIS
     Dosage: INTRAMUSCULAR; SEE IMAGE
     Route: 030
     Dates: start: 20051222
  4. SYNAGIS [Suspect]
     Indication: ANTIVIRAL PROPHYLAXIS
     Dosage: INTRAMUSCULAR; SEE IMAGE
     Route: 030
     Dates: start: 20060119
  5. SYNAGIS [Suspect]
     Indication: ANTIVIRAL PROPHYLAXIS
     Dosage: INTRAMUSCULAR; SEE IMAGE
     Route: 030
     Dates: start: 20060213

REACTIONS (4)
  - BRONCHIOLITIS [None]
  - DIARRHOEA [None]
  - HYPOGLYCAEMIA [None]
  - SUPERINFECTION [None]
